FAERS Safety Report 17091174 (Version 1)
Quarter: 2019Q4

REPORT INFORMATION
  Report Type: Spontaneous
  Country: DE (occurrence: DE)
  Receive Date: 20191129
  Receipt Date: 20191129
  Transmission Date: 20200122
  Serious: Yes (Life-Threatening, Hospitalization, Other)
  Sender: FDA-Public Use
  Company Number: DE-ROCHE-2422364

PATIENT
  Age: 57 Year
  Sex: Male
  Weight: 90 kg

DRUGS (4)
  1. ACETYLSALICYLIC ACID [Concomitant]
     Active Substance: ASPIRIN
     Route: 065
     Dates: start: 20190920
  2. ACTILYSE [Suspect]
     Active Substance: ALTEPLASE
     Indication: COMPLICATION ASSOCIATED WITH DEVICE
     Route: 013
     Dates: start: 20190920, end: 20190920
  3. ACTILYSE [Suspect]
     Active Substance: ALTEPLASE
     Indication: PERIPHERAL ARTERY THROMBOSIS
  4. HEPARIN [Concomitant]
     Active Substance: HEPARIN SODIUM
     Route: 065
     Dates: start: 20190920

REACTIONS (2)
  - Cardiac arrest [Unknown]
  - Loss of consciousness [Recovered/Resolved]

NARRATIVE: CASE EVENT DATE: 20190920
